FAERS Safety Report 16580136 (Version 1)
Quarter: 2019Q3

REPORT INFORMATION
  Report Type: Spontaneous
  Country: US (occurrence: US)
  Receive Date: 20190716
  Receipt Date: 20190716
  Transmission Date: 20191004
  Serious: Yes (Other)
  Sender: FDA-Public Use
  Company Number: US-PFIZER INC-2019296268

PATIENT
  Age: 29 Year
  Sex: Female

DRUGS (6)
  1. FENTANYL CITRATE. [Suspect]
     Active Substance: FENTANYL CITRATE
     Dosage: 0.05 MG, UNK
  2. NEOSTIGMINE. [Concomitant]
     Active Substance: NEOSTIGMINE METHYLSULFATE
     Dosage: 2 MG, UNK
  3. ATROPINE. [Concomitant]
     Active Substance: ATROPINE
     Dosage: 0.8 MG, UNK
  4. NADOLOL. [Concomitant]
     Active Substance: NADOLOL
     Indication: MITRAL VALVE PROLAPSE
     Dosage: 40 MG, 1X/DAY
  5. FENTANYL CITRATE. [Suspect]
     Active Substance: FENTANYL CITRATE
     Dosage: 0.2 MG, UNK
  6. NADOLOL. [Concomitant]
     Active Substance: NADOLOL
     Indication: ATRIAL TACHYCARDIA

REACTIONS (5)
  - Circulatory collapse [Unknown]
  - Anaphylactic reaction [Unknown]
  - Generalised erythema [Unknown]
  - Cyanosis [Unknown]
  - Urticaria [Unknown]
